FAERS Safety Report 10208276 (Version 1)
Quarter: 2014Q2

REPORT INFORMATION
  Report Type: Spontaneous
  Country: US (occurrence: US)
  Receive Date: 20140530
  Receipt Date: 20140530
  Transmission Date: 20141212
  Serious: No
  Sender: FDA-Public Use
  Company Number: US-PURDUE-USA-2014-0112382

PATIENT
  Age: 61 Year
  Sex: Male

DRUGS (2)
  1. MS CONTIN TABLETS [Suspect]
     Indication: ANKYLOSING SPONDYLITIS
     Dosage: 100 MG, UNK
     Route: 048
  2. HYDROMORPHONE HCL (SIMILAR TO 19-892) [Concomitant]
     Indication: ANKYLOSING SPONDYLITIS
     Dosage: 8 MG, UNK
     Route: 048

REACTIONS (8)
  - Drug withdrawal syndrome [Not Recovered/Not Resolved]
  - Feeling abnormal [Not Recovered/Not Resolved]
  - Restlessness [Not Recovered/Not Resolved]
  - Pain [Not Recovered/Not Resolved]
  - Incoherent [Not Recovered/Not Resolved]
  - Tremor [Not Recovered/Not Resolved]
  - Erythema [Not Recovered/Not Resolved]
  - Coordination abnormal [Not Recovered/Not Resolved]
